FAERS Safety Report 17037524 (Version 3)
Quarter: 2020Q2

REPORT INFORMATION
  Report Type: Spontaneous
  Country: US (occurrence: US)
  Receive Date: 20191115
  Receipt Date: 20200622
  Transmission Date: 20200713
  Serious: No
  Sender: FDA-Public Use
  Company Number: US-PFIZER INC-2019417962

PATIENT
  Age: 57 Year
  Sex: Female

DRUGS (3)
  1. PREGABALIN. [Suspect]
     Active Substance: PREGABALIN
     Indication: TYPE 2 DIABETES MELLITUS
     Dosage: UNKNOWN DOSE 3 TIMES A DAY
  2. PREGABALIN. [Suspect]
     Active Substance: PREGABALIN
     Indication: PAIN
  3. PREGABALIN. [Suspect]
     Active Substance: PREGABALIN
     Indication: DIABETIC NEUROPATHY
     Dosage: 200 MG, AS NEEDED (TAKE 2 CAPSULE(S) EVERY 12 HOURS BY ORAL ROUTE AS NEEDED FOR 30 DAYS)
     Route: 048

REACTIONS (2)
  - Drug ineffective [Unknown]
  - Intentional product misuse [Unknown]
